FAERS Safety Report 5695837-5 (Version None)
Quarter: 2008Q2

REPORT INFORMATION
  Report Type: 
  Country: None (occurrence: None)
  Receive Date: 20080407
  Receipt Date: 20080327
  Transmission Date: 20081010
  Serious: Yes (Other)
  Sender: FDA-Public Use
  Company Number: US-JNJFOC-20080400709

PATIENT
  Sex: Male
  Weight: 106.6 kg

DRUGS (6)
  1. MOTRIN [Suspect]
     Indication: PAIN
  2. IBUPROFEN [Suspect]
  3. IBUPROFEN [Suspect]
     Indication: PAIN
  4. ALEVE PM [Suspect]
     Indication: PAIN
  5. LISINOPRIL [Concomitant]
     Indication: HYPERTENSION
  6. SINGULAIR [Concomitant]

REACTIONS (6)
  - BLOOD GLUCOSE INCREASED [None]
  - DRUG INEFFECTIVE [None]
  - INFLUENZA LIKE ILLNESS [None]
  - PAIN [None]
  - PARAESTHESIA [None]
  - SLEEP APNOEA SYNDROME [None]
